FAERS Safety Report 7359152-6 (Version None)
Quarter: 2011Q1

REPORT INFORMATION
  Report Type: 
  Country: None (occurrence: None)
  Receive Date: 20110317
  Receipt Date: 20110308
  Transmission Date: 20110831
  Serious: Yes (Hospitalization)
  Sender: FDA-Public Use
  Company Number: US-ASTRAZENECA-2011SE08091

PATIENT
  Age: 75 Year
  Sex: Female

DRUGS (2)
  1. NEXIUM [Suspect]
     Route: 048
  2. DEXILANT [Concomitant]

REACTIONS (6)
  - DRUG DOSE OMISSION [None]
  - CERVICAL VERTEBRAL FRACTURE [None]
  - SPINAL FUSION SURGERY [None]
  - ACCIDENT [None]
  - VOMITING [None]
  - MALAISE [None]
